FAERS Safety Report 25977334 (Version 2)
Quarter: 2025Q4

REPORT INFORMATION
  Report Type: Spontaneous
  Country: CA (occurrence: CA)
  Receive Date: 20251030
  Receipt Date: 20251113
  Transmission Date: 20260117
  Serious: Yes (Other)
  Sender: TEVA
  Company Number: CA-ABBVIE-6352329

PATIENT
  Age: 60 Year
  Sex: Female

DRUGS (7)
  1. NALTREXONE [Suspect]
     Active Substance: NALTREXONE
     Indication: Benign familial pemphigus
     Dosage: LOW-DOSE
     Route: 065
  2. ROFLUMILAST [Suspect]
     Active Substance: ROFLUMILAST
     Indication: Benign familial pemphigus
     Route: 061
  3. METHOTREXATE [Suspect]
     Active Substance: METHOTREXATE
     Indication: Benign familial pemphigus
     Route: 048
  4. ABROCITINIB [Suspect]
     Active Substance: ABROCITINIB
     Indication: Benign familial pemphigus
     Route: 048
  5. MAGNESIUM CHLORIDE [Suspect]
     Active Substance: MAGNESIUM CHLORIDE
     Indication: Benign familial pemphigus
     Route: 048
  6. DAPSONE [Suspect]
     Active Substance: DAPSONE
     Indication: Benign familial pemphigus
     Route: 065
  7. ACITRETIN [Suspect]
     Active Substance: ACITRETIN
     Indication: Benign familial pemphigus
     Route: 065

REACTIONS (5)
  - Nausea [Unknown]
  - Anaemia [Unknown]
  - Off label use [Unknown]
  - Constipation [Unknown]
  - Drug ineffective [Unknown]
